FAERS Safety Report 22026009 (Version 1)
Quarter: 2023Q1

REPORT INFORMATION
  Report Type: Spontaneous
  Country: US (occurrence: None)
  Receive Date: 20230223
  Receipt Date: 20230223
  Transmission Date: 20230417
  Serious: No
  Sender: FDA-Public Use
  Company Number: US-ROCHE-3139976

PATIENT
  Age: 78 Year
  Sex: Female
  Weight: 60.836 kg

DRUGS (12)
  1. XOLAIR [Suspect]
     Active Substance: OMALIZUMAB
     Indication: Idiopathic urticaria
     Route: 058
     Dates: start: 202204
  2. DOXEPIN [Concomitant]
     Active Substance: DOXEPIN
     Indication: Urticaria
     Dosage: IN THE MORNING
     Route: 048
  3. DOXEPIN [Concomitant]
     Active Substance: DOXEPIN
     Dosage: AT NIGHT
     Route: 048
  4. PREDNISONE [Concomitant]
     Active Substance: PREDNISONE
     Indication: Urticaria
     Route: 048
  5. ATORVASTATIN [Concomitant]
     Active Substance: ATORVASTATIN
     Indication: Blood cholesterol
     Route: 048
  6. LIPITOR [Concomitant]
     Active Substance: ATORVASTATIN CALCIUM
     Indication: Blood cholesterol increased
     Route: 061
  7. MEDROXYPROGESTERONE [Concomitant]
     Active Substance: MEDROXYPROGESTERONE
     Indication: Postmenopause
     Route: 048
  8. ESTRADIOL [Concomitant]
     Active Substance: ESTRADIOL
     Indication: Postmenopause
     Route: 048
  9. LISINOPRIL [Concomitant]
     Active Substance: LISINOPRIL
     Indication: Hypertension
     Dosage: AT NIGHT
     Route: 048
  10. METOPROLOL SUCCINATE [Concomitant]
     Active Substance: METOPROLOL SUCCINATE
     Indication: Hypertension
     Dosage: IN THE MORNING
     Route: 048
  11. HYDROCHLOROTHIAZIDE [Concomitant]
     Active Substance: HYDROCHLOROTHIAZIDE
     Indication: Hypertension
     Dosage: TO BE TAKEN WITH METOPROLOL
     Route: 048
  12. MELOXICAM [Concomitant]
     Active Substance: MELOXICAM
     Indication: Arthropathy

REACTIONS (6)
  - Urticaria [Not Recovered/Not Resolved]
  - Swelling [Not Recovered/Not Resolved]
  - Pruritus [Recovered/Resolved]
  - Burning sensation [Recovered/Resolved]
  - Condition aggravated [Unknown]
  - Illness [Unknown]

NARRATIVE: CASE EVENT DATE: 20220401
